FAERS Safety Report 17523359 (Version 2)
Quarter: 2020Q1

REPORT INFORMATION
  Report Type: Report from Study
  Country: DE (occurrence: DE)
  Receive Date: 20200310
  Receipt Date: 20200316
  Transmission Date: 20200409
  Serious: Yes (Hospitalization)
  Sender: FDA-Public Use
  Company Number: DE-ROCHE-2562051

PATIENT
  Age: 83 Year
  Sex: Male
  Weight: 81 kg

DRUGS (22)
  1. LOSARTAN. [Concomitant]
     Active Substance: LOSARTAN
     Indication: HYPERTENSION
     Route: 048
  2. TRAPIDIL [Concomitant]
     Active Substance: TRAPIDIL
     Indication: CORONARY ARTERY DISEASE
     Route: 048
  3. TORASEMID [Concomitant]
     Active Substance: TORSEMIDE
     Indication: CORONARY ARTERY DISEASE
     Route: 048
     Dates: start: 20200203
  4. AMLODIPINE [Concomitant]
     Active Substance: AMLODIPINE BESYLATE
     Indication: HYPERTENSION
     Route: 048
  5. PARACETAMOL [Concomitant]
     Active Substance: ACETAMINOPHEN
     Indication: INFLUENZA
     Route: 042
     Dates: start: 20200130, end: 20200131
  6. ENOXAPARIN [Concomitant]
     Active Substance: ENOXAPARIN
     Indication: ATRIAL FIBRILLATION
     Route: 058
     Dates: start: 20200129, end: 20200203
  7. MELPERON [Concomitant]
     Active Substance: MELPERONE
     Indication: PROPHYLAXIS
     Route: 048
     Dates: start: 20200131, end: 20200201
  8. LIXIANA [Concomitant]
     Active Substance: EDOXABAN TOSYLATE
     Indication: ATRIAL FIBRILLATION
     Route: 048
     Dates: start: 20200203
  9. SALBUTAMOL [Concomitant]
     Active Substance: ALBUTEROL
     Indication: INFLUENZA
     Route: 050
     Dates: start: 20200129, end: 20200207
  10. METOPROLOL. [Concomitant]
     Active Substance: METOPROLOL
     Route: 048
     Dates: start: 20200129
  11. NEBIVOLOL. [Concomitant]
     Active Substance: NEBIVOLOL
     Indication: HYPERTENSION
     Route: 048
     Dates: start: 20200131
  12. METOPROLOL. [Concomitant]
     Active Substance: METOPROLOL
     Indication: CORONARY ARTERY DISEASE
     Route: 042
     Dates: start: 20200129, end: 20200130
  13. MAGNESIUM [Concomitant]
     Active Substance: MAGNESIUM
     Indication: PROPHYLAXIS
     Route: 042
     Dates: start: 20200130, end: 20200130
  14. POTASSIUM [Concomitant]
     Active Substance: POTASSIUM
     Indication: PROPHYLAXIS
     Dosage: 40 OTHER
     Route: 048
     Dates: start: 20200129
  15. OSELTAMIVIR [Suspect]
     Active Substance: OSELTAMIVIR
     Indication: INFLUENZA
     Dosage: DOSE OF LAST OSELTAMIVIR PRIOR TO AE/SAE ONSET: 75 MG?DATE OF MOST RECENT DOSE OF OSELTAMIVIR PRIOR
     Route: 048
     Dates: start: 20200131
  16. TAMIFLU [Concomitant]
     Active Substance: OSELTAMIVIR PHOSPHATE
     Indication: INFLUENZA
     Route: 048
     Dates: start: 20200130, end: 20200131
  17. BALOXAVIR MARBOXIL. [Suspect]
     Active Substance: BALOXAVIR MARBOXIL
     Indication: INFLUENZA
     Dosage: DATE OF MOST RECENT DOSE OF BLINDED BALOXAVIR MARBOXIL PRIOR TO AE/SAE ONSET: 31/JAN/2020?START TIME
     Route: 048
     Dates: start: 20200131
  18. FUROSEMID [FUROSEMIDE] [Concomitant]
     Active Substance: FUROSEMIDE
     Indication: CORONARY ARTERY DISEASE
     Route: 042
     Dates: start: 20200129, end: 20200131
  19. IPRATROPIUM BROMIDE. [Concomitant]
     Active Substance: IPRATROPIUM BROMIDE
     Indication: INFLUENZA
     Route: 050
     Dates: start: 20200129, end: 20200129
  20. NACL [Concomitant]
     Active Substance: SODIUM CHLORIDE
     Indication: INFLUENZA
     Route: 050
     Dates: start: 20200129, end: 20200207
  21. EZETIMIBE. [Concomitant]
     Active Substance: EZETIMIBE
     Indication: CORONARY ARTERY DISEASE
     Route: 048
  22. PANTOPRAZOL [PANTOPRAZOLE] [Concomitant]
     Active Substance: PANTOPRAZOLE
     Indication: GASTROINTESTINAL DISORDER PROPHYLAXIS
     Route: 048

REACTIONS (1)
  - Atrial fibrillation [Recovered/Resolved]

NARRATIVE: CASE EVENT DATE: 20200217
